FAERS Safety Report 11900230 (Version 1)
Quarter: 2016Q1

REPORT INFORMATION
  Report Type: Report from Study
  Country: US (occurrence: US)
  Receive Date: 20160108
  Receipt Date: 20160108
  Transmission Date: 20160526
  Serious: No
  Sender: FDA-Public Use
  Company Number: US-ABBVIE-15P-163-1430208-00

PATIENT
  Sex: Female

DRUGS (3)
  1. VIEKIRA PAK [Suspect]
     Active Substance: DASABUVIR\OMBITASVIR\PARITAPREVIR\RITONAVIR
     Indication: HEPATITIS C
     Dosage: TAKE 2 PINK WITH 1 BEIGE TAB IN AM; 1 BEIGE TAB IN PM
     Route: 048
     Dates: start: 20150614, end: 201507
  2. LEXAPRO [Concomitant]
     Active Substance: ESCITALOPRAM OXALATE
     Indication: PRODUCT USED FOR UNKNOWN INDICATION
  3. RIBAVIRIN. [Concomitant]
     Active Substance: RIBAVIRIN
     Indication: PRODUCT USED FOR UNKNOWN INDICATION

REACTIONS (7)
  - Suicidal ideation [Unknown]
  - Nausea [Unknown]
  - Diarrhoea [Unknown]
  - Chills [Unknown]
  - Flushing [Unknown]
  - Weight decreased [Unknown]
  - Vomiting [Unknown]
